FAERS Safety Report 9384984 (Version 2)
Quarter: 2014Q1

REPORT INFORMATION
  Report Type: Spontaneous
  Country: US (occurrence: US)
  Receive Date: 20130705
  Receipt Date: 20140107
  Transmission Date: 20141002
  Serious: Yes (Other)
  Sender: FDA-Public Use
  Company Number: US-GLAXOSMITHKLINE-A1020515A

PATIENT
  Age: 45 Year
  Sex: Female

DRUGS (15)
  1. BENLYSTA [Suspect]
     Indication: SYSTEMIC LUPUS ERYTHEMATOSUS
     Route: 042
     Dates: start: 20130321
  2. HYDROXYCHLOROQUINE [Concomitant]
  3. DICLOFENAC SODIUM [Concomitant]
  4. TOPIRAMATE [Concomitant]
  5. FOLIC ACID [Concomitant]
  6. NIACIN [Concomitant]
  7. CYANOCOBALAMIN [Concomitant]
  8. FISH OIL [Concomitant]
  9. CALCIUM D [Concomitant]
  10. TORADOL [Concomitant]
  11. NYSTATIN [Concomitant]
  12. ASPIRIN [Concomitant]
  13. MULTIVITAMIN [Concomitant]
  14. PRILOSEC [Concomitant]
  15. EMETROL [Concomitant]

REACTIONS (5)
  - Pneumonia viral [Recovered/Resolved]
  - Sinusitis [Recovering/Resolving]
  - Migraine [Not Recovered/Not Resolved]
  - Infusion related reaction [Not Recovered/Not Resolved]
  - Nausea [Recovered/Resolved]
